FAERS Safety Report 20401836 (Version 2)
Quarter: 2022Q1

REPORT INFORMATION
  Report Type: Spontaneous
  Country: US (occurrence: US)
  Receive Date: 20220131
  Receipt Date: 20220201
  Transmission Date: 20220423
  Serious: No
  Sender: FDA-Public Use
  Company Number: US-ABBVIE-21K-163-4192038-00

PATIENT
  Age: 81 Year
  Sex: Male
  Weight: 86.260 kg

DRUGS (1)
  1. HUMIRA [Suspect]
     Active Substance: ADALIMUMAB
     Indication: Colitis ulcerative
     Route: 058
     Dates: start: 2018, end: 20211110

REACTIONS (4)
  - Intentional product misuse [Recovered/Resolved]
  - Sinus congestion [Recovered/Resolved]
  - SARS-CoV-2 test positive [Recovered/Resolved]
  - Nasopharyngitis [Recovered/Resolved]

NARRATIVE: CASE EVENT DATE: 20211110
